FAERS Safety Report 8833073 (Version 1)
Quarter: 2012Q4

REPORT INFORMATION
  Report Type: 
  Country: BR (occurrence: BR)
  Receive Date: 20121010
  Receipt Date: 20121010
  Transmission Date: 20130627
  Serious: Yes (Other)
  Sender: FDA-Public Use
  Company Number: BR-PFIZER INC-2012249101

PATIENT
  Age: 69 Year
  Sex: Female

DRUGS (2)
  1. GEODON [Suspect]
     Dosage: 160 mg, 1x/day
     Dates: start: 20110501
  2. FRONTAL [Suspect]
     Dosage: 1 mg, 1 tablet 1x/day
     Dates: start: 20110301

REACTIONS (6)
  - Depression [Unknown]
  - Sluggishness [Unknown]
  - Activities of daily living impaired [Unknown]
  - Movement disorder [Unknown]
  - Speech disorder [Unknown]
  - Feeling abnormal [Unknown]
